FAERS Safety Report 9819575 (Version 2)
Quarter: 2014Q1

REPORT INFORMATION
  Report Type: Spontaneous
  Country: US (occurrence: None)
  Receive Date: 20140113
  Receipt Date: 20140218
  Transmission Date: 20141002
  Serious: Yes (Other)
  Sender: FDA-Public Use
  Company Number: 2014-00007

PATIENT
  Age: 75 Year
  Sex: Female
  Weight: 81.65 kg

DRUGS (6)
  1. ZICAM ULTRA COLD REMEDY RAPIDMELTS [Suspect]
     Indication: THROAT IRRITATION
     Dosage: 1-2 DAILY ORALLY
     Route: 048
     Dates: start: 20140102, end: 20140103
  2. GABAPENTIN [Concomitant]
  3. VICODIN [Concomitant]
  4. AMELIORIDE [Concomitant]
  5. LORAZAPAM [Concomitant]
  6. SALT TABLETS [Concomitant]

REACTIONS (2)
  - Ageusia [None]
  - Throat irritation [None]
